FAERS Safety Report 10572666 (Version 1)
Quarter: 2014Q4

REPORT INFORMATION
  Report Type: Spontaneous
  Country: US (occurrence: None)
  Receive Date: 20141107
  Receipt Date: 20141107
  Transmission Date: 20150529
  Serious: No
  Sender: FDA-Public Use
  Company Number: None

PATIENT
  Age: 71 Year
  Sex: Female
  Weight: 61.24 kg

DRUGS (3)
  1. AZELASTINE [Suspect]
     Active Substance: AZELASTINE
     Indication: EUSTACHIAN TUBE DYSFUNCTION
     Route: 045
     Dates: start: 20140715, end: 20140724
  2. AZELASTINE [Suspect]
     Active Substance: AZELASTINE
     Indication: TINNITUS
     Route: 045
     Dates: start: 20140715, end: 20140724
  3. AZELASTINE [Suspect]
     Active Substance: AZELASTINE
     Indication: RHINITIS ALLERGIC
     Route: 045
     Dates: start: 20140715, end: 20140724

REACTIONS (2)
  - Amnesia [None]
  - Epistaxis [None]

NARRATIVE: CASE EVENT DATE: 20140724
